FAERS Safety Report 4507300-5 (Version None)
Quarter: 2004Q4

REPORT INFORMATION
  Report Type: 
  Country: None (occurrence: None)
  Receive Date: 20041025
  Receipt Date: 20031212
  Transmission Date: 20050328
  Serious: Yes (Other)
  Sender: FDA-Public Use
  Company Number: US-JNJFOC-20030600740

PATIENT
  Age: 66 Year
  Sex: Female
  Weight: 76.6579 kg

DRUGS (8)
  1. REMICADE [Suspect]
     Indication: RHEUMATOID ARTHRITIS
     Dosage: 10 MG/KG, 1 IN 1 DAY, INTRAVENOUS
     Route: 042
     Dates: start: 20020601, end: 20030521
  2. METHOTREXATE SODIUM [Concomitant]
  3. GOLD (GOLD) [Concomitant]
  4. CELEBREX [Concomitant]
  5. PREMARIN [Concomitant]
  6. PLAVIX [Concomitant]
  7. ENBREL [Concomitant]
  8. REDURA (ALL OTHER THERAPEUTIC PRODUCTS) [Concomitant]

REACTIONS (1)
  - LYMPHOMA [None]
